FAERS Safety Report 23231080 (Version 2)
Quarter: 2023Q4

REPORT INFORMATION
  Report Type: Spontaneous
  Country: DE (occurrence: DE)
  Receive Date: 20231127
  Receipt Date: 20231222
  Transmission Date: 20240110
  Serious: Yes (Other)
  Sender: FDA-Public Use
  Company Number: DE-CADRBFARM-2023321673

PATIENT
  Age: 52 Year
  Sex: Male
  Weight: 76 kg

DRUGS (3)
  1. SERTRALINE [Suspect]
     Active Substance: SERTRALINE HYDROCHLORIDE
     Indication: Depression
     Dosage: 50 MILLIGRAM, WEANING ATTEMPT IN MAY 2020
     Route: 048
     Dates: start: 202005
  2. SERTRALINE [Suspect]
     Active Substance: SERTRALINE HYDROCHLORIDE
     Dosage: 100 MILLIGRAM, DAILY, 1 TABLET AM TAG 100 MG
     Route: 048
     Dates: start: 20190210, end: 20210118
  3. OLANZAPINE [Suspect]
     Active Substance: OLANZAPINE
     Indication: Psychotic disorder
     Dosage: UNK
     Route: 048
     Dates: start: 20190210, end: 20211102

REACTIONS (13)
  - Cerebral atrophy [Recovered/Resolved with Sequelae]
  - Drug withdrawal syndrome [Unknown]
  - Depression [Unknown]
  - Disinhibition [Unknown]
  - Persecutory delusion [Recovered/Resolved with Sequelae]
  - Personality change [Unknown]
  - Anxiety [Recovered/Resolved with Sequelae]
  - Derealisation [Recovered/Resolved with Sequelae]
  - Sick leave [Recovered/Resolved with Sequelae]
  - Involuntary commitment [Unknown]
  - Post-traumatic stress disorder [Unknown]
  - Loss of libido [Recovered/Resolved]
  - Labelled drug-disease interaction issue [Unknown]

NARRATIVE: CASE EVENT DATE: 20190301
